FAERS Safety Report 21172254 (Version 1)
Quarter: 2022Q3

REPORT INFORMATION
  Report Type: Spontaneous
  Country: US (occurrence: None)
  Receive Date: 20220803
  Receipt Date: 20220803
  Transmission Date: 20221026
  Serious: No
  Sender: FDA-Public Use
  Company Number: None

PATIENT
  Sex: Male

DRUGS (1)
  1. SUNITINIB MALATE [Suspect]
     Active Substance: SUNITINIB MALATE
     Dosage: OTHER QUANTITY : 37.5MG;?
     Dates: start: 20220225

REACTIONS (2)
  - Myocardial infarction [None]
  - Coronary arterial stent insertion [None]
